FAERS Safety Report 18663173 (Version 3)
Quarter: 2021Q1

REPORT INFORMATION
  Report Type: Report from Study
  Country: US (occurrence: US)
  Receive Date: 20201224
  Receipt Date: 20210211
  Transmission Date: 20210419
  Serious: Yes (Hospitalization)
  Sender: FDA-Public Use
  Company Number: US-GLAXOSMITHKLINE-US2020GSK251942

PATIENT
  Age: 57 Year
  Sex: Female
  Weight: 64.9 kg

DRUGS (14)
  1. BARIUM SULFATE [Concomitant]
     Active Substance: BARIUM SULFATE
     Dosage: 450 ML, PRN
  2. LIDOCAINE?PRILOCAINE CREAM [Concomitant]
  3. OXYCODONE [Concomitant]
     Active Substance: OXYCODONE
     Dosage: 60 MG, BID
  4. OXYCODONE HYDROCHLORIDE. [Concomitant]
     Active Substance: OXYCODONE HYDROCHLORIDE
     Dosage: 10 MG
  5. LEVOXYL [Concomitant]
     Active Substance: LEVOTHYROXINE SODIUM
     Dosage: 125 UG
  6. NIRAPARIB [Suspect]
     Active Substance: NIRAPARIB
     Indication: PANCREATIC CARCINOMA
     Dosage: 100 MG, QD
     Route: 048
     Dates: start: 20201104, end: 20201215
  7. ACETAMINOPHEN. [Concomitant]
     Active Substance: ACETAMINOPHEN
     Dosage: 500 MG
  8. IBUPROFEN. [Concomitant]
     Active Substance: IBUPROFEN
     Dosage: 200 MG
  9. DOSTARLIMAB [Suspect]
     Active Substance: DOSTARLIMAB
     Indication: PANCREATIC CARCINOMA
     Dosage: 500 MG, Z (1 EVERY 3 WEEK)
     Route: 042
     Dates: start: 20201130, end: 20201130
  10. LACTULOSE. [Concomitant]
     Active Substance: LACTULOSE
     Dosage: UNK (10GM/15ML)
  11. LEVOTHYROXINE. [Concomitant]
     Active Substance: LEVOTHYROXINE
     Dosage: 175 ?G
  12. ALPHA?D?GALACTOSIDASE [Concomitant]
  13. LORAZEPAM. [Concomitant]
     Active Substance: LORAZEPAM
     Dosage: 0.5 MG
  14. OMEPRAZOLE. [Concomitant]
     Active Substance: OMEPRAZOLE
     Dosage: 20 MG

REACTIONS (9)
  - Localised oedema [Unknown]
  - Hyperbilirubinaemia [Unknown]
  - Abdominal pain [Recovered/Resolved]
  - Ascites [Unknown]
  - Anxiety [Unknown]
  - Abdominal pain [Recovered/Resolved]
  - Abdominal distension [Unknown]
  - Pulmonary embolism [Unknown]
  - Hepatic enzyme increased [Unknown]

NARRATIVE: CASE EVENT DATE: 20201216
